FAERS Safety Report 8610191 (Version 3)
Quarter: 2012Q4

REPORT INFORMATION
  Report Type: 
  Country: US (occurrence: US)
  Receive Date: 20120612
  Receipt Date: 20121217
  Transmission Date: 20130627
  Serious: Yes (Other)
  Sender: FDA-Public Use
  Company Number: US-PFIZER INC-2012136307

PATIENT
  Age: 25 Year
  Sex: Female
  Weight: 58.96 kg

DRUGS (3)
  1. EFFEXOR XR [Suspect]
     Indication: ANXIETY
     Dosage: 225 mg (three capsules of 75mg), 1x/day
     Route: 048
     Dates: start: 2007
  2. EFFEXOR XR [Suspect]
     Indication: SOCIAL ANXIETY DISORDER
  3. KLONOPIN [Concomitant]
     Dosage: UNK

REACTIONS (8)
  - Multiple sclerosis [Unknown]
  - Nervous system disorder [Unknown]
  - Abasia [Unknown]
  - Muscular dystrophy [Unknown]
  - Mitochondrial myopathy [Unknown]
  - Mydriasis [Unknown]
  - Withdrawal syndrome [Unknown]
  - Constipation [Unknown]
